FAERS Safety Report 11094032 (Version 1)
Quarter: 2015Q2

REPORT INFORMATION
  Report Type: Spontaneous
  Country: US (occurrence: None)
  Receive Date: 20150428
  Receipt Date: 20150428
  Transmission Date: 20150821
  Serious: Yes (Other)
  Sender: FDA-Public Use
  Company Number: PHEH2014US022725

PATIENT
  Age: 50 Year
  Sex: Male

DRUGS (1)
  1. GILENYA [Suspect]
     Active Substance: FINGOLIMOD HYDROCHLORIDE
     Indication: RELAPSING-REMITTING MULTIPLE SCLEROSIS
     Route: 048
     Dates: start: 20141027

REACTIONS (5)
  - Blood pressure systolic increased [None]
  - Asthenia [None]
  - Somnolence [None]
  - Feeling abnormal [None]
  - Muscle disorder [None]

NARRATIVE: CASE EVENT DATE: 20141027
